FAERS Safety Report 8486404-9 (Version None)
Quarter: 2012Q3

REPORT INFORMATION
  Report Type: 
  Country: None (occurrence: None)
  Receive Date: 20120703
  Receipt Date: 20120626
  Transmission Date: 20120928
  Serious: Yes (Hospitalization, Other)
  Sender: FDA-Public Use
  Company Number: US-BRISTOL-MYERS SQUIBB COMPANY-16451551

PATIENT
  Age: 64 Year
  Sex: Male

DRUGS (2)
  1. IPILIMUMAB [Suspect]
     Indication: MALIGNANT MELANOMA
     Dosage: 300MG AT A DOSE OF 3MG/KG LAST DOSE ON 29MAR2012 NO OF DOSE: 2(TOTAL)
     Route: 042
     Dates: start: 20120214, end: 20120329
  2. MDX-1106 [Suspect]
     Indication: MALIGNANT MELANOMA
     Dosage: 100MG AT A DOSE OF 1MG/KG LAST DOSE ON 29MAR2012 NO OF DOSE: 2(TOTAL)
     Route: 042
     Dates: start: 20120214, end: 20120329

REACTIONS (9)
  - TUBULOINTERSTITIAL NEPHRITIS [None]
  - RENAL FAILURE ACUTE [None]
  - DEHYDRATION [None]
  - ADRENAL INSUFFICIENCY [None]
  - HYPOTENSION [None]
  - SMALL INTESTINAL OBSTRUCTION [None]
  - THYROIDITIS [None]
  - HYPERTHYROIDISM [None]
  - HYPOTHYROIDISM [None]
